FAERS Safety Report 9851265 (Version 2)
Quarter: 2014Q1

REPORT INFORMATION
  Report Type: Report from Study
  Country: US (occurrence: US)
  Receive Date: 20140128
  Receipt Date: 20140218
  Transmission Date: 20141002
  Serious: No
  Sender: FDA-Public Use
  Company Number: US-ROCHE-1341192

PATIENT
  Sex: Female

DRUGS (36)
  1. HERCEPTIN [Suspect]
     Indication: BREAST CANCER
     Route: 065
     Dates: end: 20050602
  2. HERCEPTIN [Suspect]
     Route: 065
     Dates: start: 2005
  3. HERCEPTIN [Suspect]
     Route: 065
     Dates: start: 200811, end: 201007
  4. HERCEPTIN [Suspect]
     Route: 065
     Dates: start: 201012
  5. HERCEPTIN [Suspect]
     Route: 065
  6. KADCYLA [Suspect]
     Indication: BREAST CANCER
     Route: 065
     Dates: end: 201307
  7. KADCYLA [Suspect]
     Route: 065
     Dates: start: 20131115
  8. ZOMETA [Concomitant]
     Route: 065
  9. RITALIN LA [Concomitant]
     Route: 048
  10. ZOFRAN [Concomitant]
     Route: 065
  11. VICODIN [Concomitant]
     Route: 065
  12. LEXAPRO [Concomitant]
     Route: 048
  13. CARBOPLATIN [Concomitant]
     Route: 065
     Dates: end: 20050602
  14. TAXOTERE [Concomitant]
     Route: 065
     Dates: end: 20050602
  15. TAMOXIFEN [Concomitant]
     Route: 065
     Dates: start: 2005
  16. TAMOXIFEN [Concomitant]
     Route: 065
     Dates: start: 2011
  17. XELODA [Concomitant]
     Route: 065
     Dates: start: 200601, end: 200604
  18. XELODA [Concomitant]
     Route: 065
     Dates: end: 200603
  19. XELODA [Concomitant]
     Route: 065
     Dates: start: 200707
  20. ARIMIDEX [Concomitant]
     Route: 065
     Dates: start: 20050503, end: 200603
  21. ARIMIDEX [Concomitant]
     Route: 065
     Dates: start: 201008, end: 201012
  22. ARIMIDEX [Concomitant]
     Route: 065
     Dates: start: 20110421
  23. TYKERB [Concomitant]
     Route: 065
     Dates: start: 200707, end: 200811
  24. IXABEPILONE [Concomitant]
     Route: 065
     Dates: start: 200802
  25. IXABEPILONE [Concomitant]
     Route: 065
     Dates: start: 200808, end: 200811
  26. NAVELBINE [Concomitant]
     Route: 065
     Dates: start: 200811
  27. NAVELBINE [Concomitant]
     Route: 065
     Dates: start: 200910, end: 201002
  28. AROMASIN [Concomitant]
     Route: 065
     Dates: start: 2008, end: 200905
  29. FASLODEX [Concomitant]
     Route: 065
     Dates: start: 200905
  30. TAXOL [Concomitant]
     Route: 065
     Dates: start: 201002, end: 201007
  31. TAXOL [Concomitant]
     Route: 065
     Dates: start: 201012, end: 20110421
  32. TAXOL [Concomitant]
     Route: 065
     Dates: start: 201212
  33. FEMARA [Concomitant]
     Route: 065
     Dates: start: 201007, end: 201008
  34. GEMZAR [Concomitant]
     Route: 065
     Dates: start: 201012, end: 20110421
  35. GEMZAR [Concomitant]
     Route: 065
     Dates: start: 201212
  36. TAMOXIFEN [Concomitant]

REACTIONS (7)
  - Nausea [Unknown]
  - Vomiting [Unknown]
  - Dyspepsia [Unknown]
  - Cough [Unknown]
  - Dyspnoea exertional [Unknown]
  - Asthenia [Unknown]
  - Constipation [Unknown]
